FAERS Safety Report 5690925-1 (Version None)
Quarter: 2008Q2

REPORT INFORMATION
  Report Type: 
  Country: None (occurrence: None)
  Receive Date: 20080401
  Receipt Date: 20080319
  Transmission Date: 20081010
  Serious: Yes (Other)
  Sender: FDA-Public Use
  Company Number: DE-GENENTECH-254362

PATIENT
  Sex: Female

DRUGS (1)
  1. HERCEPTIN [Suspect]
     Indication: MONOCLONAL ANTIBODY UNCONJUGATED THERAPY
     Dates: start: 20060615

REACTIONS (1)
  - CORONARY ARTERY DISEASE [None]
